FAERS Safety Report 19815369 (Version 1)
Quarter: 2021Q3

REPORT INFORMATION
  Report Type: Spontaneous
  Country: JP (occurrence: JP)
  Receive Date: 20210910
  Receipt Date: 20210910
  Transmission Date: 20211014
  Serious: Yes (Other)
  Sender: FDA-Public Use
  Company Number: JP-DSJP-DSJ-2021-129389

PATIENT
  Age: 8 Decade
  Sex: Female

DRUGS (7)
  1. PACLITAXEL. [Suspect]
     Active Substance: PACLITAXEL
     Indication: METASTASES TO PANCREAS
     Dosage: 90 MG/M2, ONCE EVERY 2 WK
     Route: 065
  2. OLMETEC OD [Suspect]
     Active Substance: OLMESARTAN MEDOXOMIL
     Indication: HYPERTENSION
     Dosage: UNK
     Route: 048
  3. BEVACIZUMAB. [Suspect]
     Active Substance: BEVACIZUMAB
     Indication: BREAST CANCER
     Dosage: 10 MG/KG, ONCE EVERY 2 WK
     Route: 065
  4. PACLITAXEL. [Suspect]
     Active Substance: PACLITAXEL
     Indication: BREAST CANCER
     Dosage: 90 MG/M2, ONCE EVERY 2 WK
     Route: 065
  5. BEVACIZUMAB. [Suspect]
     Active Substance: BEVACIZUMAB
     Indication: METASTASES TO PANCREAS
     Dosage: 10 MG/KG, ONCE EVERY 2 WK
     Route: 065
  6. BENIDIPINE [Concomitant]
     Active Substance: BENIDIPINE
     Dosage: UNK
     Route: 048
  7. RABEPRAZOLE [RABEPRAZOLE SODIUM] [Concomitant]
     Active Substance: RABEPRAZOLE SODIUM
     Dosage: UNK
     Route: 048

REACTIONS (3)
  - Pancreatitis [Recovered/Resolved]
  - Cataract [Unknown]
  - Pancreatic pseudocyst [Recovered/Resolved]
